FAERS Safety Report 16719536 (Version 1)
Quarter: 2019Q3

REPORT INFORMATION
  Report Type: Spontaneous
  Country: BR (occurrence: BR)
  Receive Date: 20190820
  Receipt Date: 20190820
  Transmission Date: 20191005
  Serious: Yes (Death, Hospitalization)
  Sender: FDA-Public Use
  Company Number: US-SLATE RUN PHARMACEUTICALS-SLTR-AE-19-80

PATIENT
  Age: 14 Year
  Sex: Male

DRUGS (4)
  1. 70436-029-80 VORICONAZOLE FOR INJECTION DRY VIAL 200 MG [Suspect]
     Active Substance: VORICONAZOLE
     Indication: BRONCHOPULMONARY ASPERGILLOSIS
     Route: 042
  2. AMPHOTERICIN LIPID COMPLEX [Concomitant]
     Indication: FUNGAL INFECTION
  3. 70436-029-80 VORICONAZOLE FOR INJECTION DRY VIAL 200 MG [Suspect]
     Active Substance: VORICONAZOLE
     Indication: BRONCHOPULMONARY ASPERGILLOSIS
     Route: 042
  4. VASOACTIVE DRUG [Concomitant]
     Indication: HAEMODYNAMIC INSTABILITY

REACTIONS (1)
  - Septic shock [Fatal]
